FAERS Safety Report 6429556-4 (Version None)
Quarter: 2009Q4

REPORT INFORMATION
  Report Type: 
  Country: None (occurrence: None)
  Receive Date: 20091103
  Receipt Date: 20091026
  Transmission Date: 20100525
  Serious: Yes (Hospitalization)
  Sender: FDA-Public Use
  Company Number: CERZ-1000967

PATIENT
  Age: 55 Year
  Sex: Female
  Weight: 57.7 kg

DRUGS (10)
  1. CEREZYME [Suspect]
     Indication: GAUCHER'S DISEASE
     Dosage: 1800 U, Q2W, INTRAVENOUS
     Route: 042
  2. CEREZYME [Suspect]
  3. LORTAB (PARACETAMOL, PROMETHAZINE HYDROCHLORIDE) [Concomitant]
  4. SOMA [Concomitant]
  5. LEXAPRO [Concomitant]
  6. MULTIVITAMIN [Concomitant]
  7. NEXIUM (ESOMEPRAZOLE SODIUM) [Concomitant]
  8. NORVASC [Concomitant]
  9. WELLBUTRIN XL [Concomitant]
  10. HYDROCODONE (HYDROCODONE) [Concomitant]

REACTIONS (14)
  - ABASIA [None]
  - ABNORMAL BEHAVIOUR [None]
  - BACK PAIN [None]
  - BONE DISORDER [None]
  - DEFORMITY [None]
  - DYSARTHRIA [None]
  - HIATUS HERNIA [None]
  - INCORRECT DOSE ADMINISTERED [None]
  - KYPHOSIS [None]
  - LIVER FUNCTION TEST ABNORMAL [None]
  - MYELOPATHY [None]
  - OSTEONECROSIS [None]
  - SEDATION [None]
  - SPLENIC CALCIFICATION [None]
